FAERS Safety Report 11419059 (Version 1)
Quarter: 2015Q3

REPORT INFORMATION
  Report Type: Spontaneous
  Country: US (occurrence: US)
  Receive Date: 20150826
  Receipt Date: 20150826
  Transmission Date: 20151125
  Serious: Yes (Other)
  Sender: FDA-Public Use
  Company Number: US-JNJFOC-20150814043

PATIENT

DRUGS (1)
  1. LISTERINE TOTAL CARE PLUS WHITENING [Suspect]
     Active Substance: SODIUM FLUORIDE
     Indication: PRODUCT USED FOR UNKNOWN INDICATION
     Route: 048

REACTIONS (3)
  - Noninfective gingivitis [Unknown]
  - Gingival bleeding [Unknown]
  - Chemical burn of gastrointestinal tract [Unknown]
